FAERS Safety Report 5892616-0 (Version None)
Quarter: 2008Q3

REPORT INFORMATION
  Report Type: 
  Country: None (occurrence: None)
  Receive Date: 20080919
  Receipt Date: 20080919
  Transmission Date: 20090109
  Serious: Yes (Life-Threatening, Hospitalization)
  Sender: FDA-Public Use
  Company Number: None

PATIENT
  Age: 59 Year
  Sex: Male
  Weight: 79.3795 kg

DRUGS (1)
  1. AVELOX [Suspect]
     Indication: SKIN INFECTION
     Dosage: 400 MG EVERY 24 HOURS PO FIRST DOSE
     Route: 048
     Dates: start: 20080916, end: 20080916

REACTIONS (1)
  - ANAPHYLACTIC SHOCK [None]
